FAERS Safety Report 15435354 (Version 1)
Quarter: 2018Q3

REPORT INFORMATION
  Report Type: Spontaneous
  Country: US (occurrence: US)
  Receive Date: 20180924
  Receipt Date: 20180924
  Transmission Date: 20181010
  Serious: Yes (Hospitalization)
  Sender: FDA-Public Use
  Company Number: None

PATIENT
  Age: 17 Year
  Sex: Male
  Weight: 39.1 kg

DRUGS (7)
  1. METHOTREXATE. [Suspect]
     Active Substance: METHOTREXATE
     Dates: end: 20180816
  2. GLEEVEC [Suspect]
     Active Substance: IMATINIB MESYLATE
     Dates: end: 20180823
  3. DEXAMETHASONE. [Suspect]
     Active Substance: DEXAMETHASONE
     Dates: end: 20180823
  4. DOXORUBICIN HYDROCHLORIDE. [Suspect]
     Active Substance: DOXORUBICIN HYDROCHLORIDE
     Dates: end: 20180824
  5. VINCRISTINE [Suspect]
     Active Substance: VINCRISTINE
     Dates: end: 20180824
  6. ZINECARD [Suspect]
     Active Substance: DEXRAZOXANE HYDROCHLORIDE
     Dates: end: 20180824
  7. ONCASPAR [Suspect]
     Active Substance: PEGASPARGASE
     Dates: end: 20180820

REACTIONS (14)
  - Decreased appetite [None]
  - Pleural effusion [None]
  - Adenovirus infection [None]
  - Hypotension [None]
  - Hepatic function abnormal [None]
  - Histiocytosis haematophagic [None]
  - Septic shock [None]
  - Dizziness [None]
  - Crepitations [None]
  - Fall [None]
  - Pneumonia [None]
  - Pseudomonas infection [None]
  - Jaundice [None]
  - Renal impairment [None]

NARRATIVE: CASE EVENT DATE: 20180830
